FAERS Safety Report 10755042 (Version 1)
Quarter: 2015Q1

REPORT INFORMATION
  Report Type: Spontaneous
  Country: US (occurrence: US)
  Receive Date: 20150202
  Receipt Date: 20150202
  Transmission Date: 20150721
  Serious: No
  Sender: FDA-Public Use
  Company Number: US-BAYER-2015-013635

PATIENT
  Age: 48 Year
  Sex: Male
  Weight: 163 kg

DRUGS (1)
  1. ALEVE [Suspect]
     Active Substance: NAPROXEN SODIUM
     Indication: CARDIAC DISORDER
     Dosage: 2 UNK, UNK
     Route: 048
     Dates: start: 2014

REACTIONS (3)
  - Incorrect drug administration duration [None]
  - Extra dose administered [None]
  - Off label use [Unknown]

NARRATIVE: CASE EVENT DATE: 2014
